FAERS Safety Report 20026505 (Version 1)
Quarter: 2021Q4

REPORT INFORMATION
  Report Type: Spontaneous
  Country: US (occurrence: US)
  Receive Date: 20211102
  Receipt Date: 20211102
  Transmission Date: 20220303
  Serious: No
  Sender: FDA-Public Use
  Company Number: US-KYOWAKIRIN-2021BKK018344

PATIENT

DRUGS (2)
  1. NOURIANZ [Suspect]
     Active Substance: ISTRADEFYLLINE
     Indication: Parkinson^s disease
     Dosage: 40 MG ONCE DAILY
     Route: 065
     Dates: start: 2021, end: 2021
  2. NOURIANZ [Suspect]
     Active Substance: ISTRADEFYLLINE
     Dosage: 20 MG ONCE DAILY
     Route: 065
     Dates: start: 2021, end: 2021

REACTIONS (2)
  - Orthostatic hypotension [Unknown]
  - Constipation [Unknown]

NARRATIVE: CASE EVENT DATE: 20210101
